FAERS Safety Report 4374107-1 (Version None)
Quarter: 2004Q2

REPORT INFORMATION
  Report Type: 
  Country: None (occurrence: None)
  Receive Date: 20040607
  Receipt Date: 20040527
  Transmission Date: 20050107
  Serious: Yes (Death)
  Sender: FDA-Public Use
  Company Number: BR-ROCHE-369334

PATIENT
  Age: 49 Year
  Sex: Male
  Weight: 87 kg

DRUGS (2)
  1. PEGASYS [Suspect]
     Route: 058
     Dates: start: 20040315, end: 20040515
  2. RIBAVIRIN [Suspect]
     Route: 048
     Dates: start: 20040315, end: 20040515

REACTIONS (13)
  - ABDOMINAL PAIN [None]
  - ANAEMIA [None]
  - HAEMORRHAGE [None]
  - HEADACHE [None]
  - LEUKOPENIA [None]
  - MULTI-ORGAN FAILURE [None]
  - OCULAR ICTERUS [None]
  - PYREXIA [None]
  - THROMBOCYTOPENIA [None]
  - TRANSAMINASES INCREASED [None]
  - TREMOR [None]
  - VOMITING [None]
  - WEIGHT DECREASED [None]
